FAERS Safety Report 24636598 (Version 1)
Quarter: 2024Q4

REPORT INFORMATION
  Report Type: Spontaneous
  Country: ES (occurrence: ES)
  Receive Date: 20241119
  Receipt Date: 20241119
  Transmission Date: 20250114
  Serious: Yes (Other)
  Sender: RANBAXY
  Company Number: ES-SUN PHARMACEUTICAL INDUSTRIES LTD-2024R1-479759

PATIENT
  Age: 29 Year
  Sex: Female
  Weight: 117 kg

DRUGS (1)
  1. SPIRONOLACTONE [Suspect]
     Active Substance: SPIRONOLACTONE
     Indication: Hyperandrogenism
     Dosage: UNK
     Route: 065

REACTIONS (1)
  - Ovarian cancer [Unknown]
